FAERS Safety Report 24329024 (Version 6)
Quarter: 2025Q2

REPORT INFORMATION
  Report Type: Report from Study
  Country: US (occurrence: US)
  Receive Date: 20240917
  Receipt Date: 20250520
  Transmission Date: 20250717
  Serious: Yes (Other)
  Sender: TAIHO ONCOLOGY INC
  Company Number: US-TAIHOP-2024-004450

PATIENT
  Age: 67 Year
  Sex: Female

DRUGS (5)
  1. LONSURF [Suspect]
     Active Substance: TIPIRACIL HYDROCHLORIDE\TRIFLURIDINE
     Indication: Rectal cancer
     Dosage: CYCLE 1; START DATE: 18-APR-2024
     Route: 048
  2. LONSURF [Suspect]
     Active Substance: TIPIRACIL HYDROCHLORIDE\TRIFLURIDINE
     Dosage: RESTARTED THERAPY
     Route: 048
     Dates: start: 20250303
  3. GABAPENTIN [Concomitant]
     Active Substance: GABAPENTIN
     Indication: Product used for unknown indication
  4. MORPHINE SULFATE [Concomitant]
     Active Substance: MORPHINE SULFATE
     Indication: Product used for unknown indication
  5. OMEPRAZOLE [Concomitant]
     Active Substance: OMEPRAZOLE
     Indication: Product used for unknown indication

REACTIONS (12)
  - Loss of consciousness [Unknown]
  - Pain [Unknown]
  - Oral pain [Unknown]
  - White blood cell count decreased [Not Recovered/Not Resolved]
  - Neuralgia [Unknown]
  - Gastrointestinal stoma complication [Unknown]
  - Nausea [Unknown]
  - Diarrhoea [Unknown]
  - Therapy interrupted [Unknown]
  - Product dose omission in error [Unknown]
  - Vomiting [Not Recovered/Not Resolved]
  - Pyrexia [Unknown]

NARRATIVE: CASE EVENT DATE: 20240401
